FAERS Safety Report 8476315-7 (Version None)
Quarter: 2012Q2

REPORT INFORMATION
  Report Type: 
  Country: None (occurrence: None)
  Receive Date: 20120628
  Receipt Date: 20120625
  Transmission Date: 20120825
  Serious: Yes (Other)
  Sender: FDA-Public Use
  Company Number: JP-EISAI INC-E2090-02191-SPO-JP

PATIENT
  Age: 56 Year
  Sex: Male

DRUGS (1)
  1. ZONISAMIDE [Suspect]
     Dosage: UNKNOWN
     Route: 048
     Dates: start: 20110301, end: 20110401

REACTIONS (1)
  - TOXIC EPIDERMAL NECROLYSIS [None]
